FAERS Safety Report 17108543 (Version 1)
Quarter: 2019Q4

REPORT INFORMATION
  Report Type: Spontaneous
  Country: ES (occurrence: ES)
  Receive Date: 20191203
  Receipt Date: 20191203
  Transmission Date: 20200122
  Serious: Yes (Hospitalization, Other)
  Sender: FDA-Public Use
  Company Number: NVSC2019ES033619

PATIENT
  Age: 6 Year
  Sex: Male
  Weight: 27 kg

DRUGS (4)
  1. TRILEPTAL [Suspect]
     Active Substance: OXCARBAZEPINE
     Dosage: 6 DF (EVERY 12 HOURS)
     Route: 065
     Dates: end: 20191108
  2. KEPPRA [Concomitant]
     Active Substance: LEVETIRACETAM
     Indication: PRODUCT USED FOR UNKNOWN INDICATION
     Dosage: 2 DF, Q12H
     Route: 065
  3. TRILEPTAL [Suspect]
     Active Substance: OXCARBAZEPINE
     Indication: PARTIAL SEIZURES
     Dosage: 3 DF (EVERY 12 HOURS FOR A WEEK)
     Route: 065
     Dates: start: 20191020
  4. TRILEPTAL [Suspect]
     Active Substance: OXCARBAZEPINE
     Dosage: 4 DF (EVERY 12 HOURS)
     Route: 065

REACTIONS (28)
  - Lip swelling [Recovering/Resolving]
  - Stomatitis [Recovering/Resolving]
  - Wound [Recovering/Resolving]
  - Mucosal disorder [Recovered/Resolved]
  - Inflammation [Unknown]
  - Facial pain [Unknown]
  - Rash papular [Recovered/Resolved]
  - Stomatitis [Recovered/Resolved]
  - Rectal discharge [Unknown]
  - Decreased appetite [Recovered/Resolved]
  - Pruritus [Unknown]
  - Erythema [Recovering/Resolving]
  - Anal pruritus [Unknown]
  - Polyuria [Recovered/Resolved]
  - Insomnia [Recovered/Resolved]
  - Mouth haemorrhage [Recovering/Resolving]
  - Mouth ulceration [Recovering/Resolving]
  - Stevens-Johnson syndrome [Recovering/Resolving]
  - Rash macular [Recovered/Resolved]
  - Purulent discharge [Recovering/Resolving]
  - Lip erythema [Recovering/Resolving]
  - Speech disorder [Unknown]
  - Wound abscess [Unknown]
  - Pyrexia [Recovered/Resolved]
  - Dysphagia [Recovered/Resolved]
  - Breath odour [Recovering/Resolving]
  - Conjunctival hyperaemia [Recovering/Resolving]
  - Rash papular [Recovering/Resolving]

NARRATIVE: CASE EVENT DATE: 201911
